FAERS Safety Report 6742333-X (Version None)
Quarter: 2010Q2

REPORT INFORMATION
  Report Type: 
  Country: None (occurrence: None)
  Receive Date: 20100526
  Receipt Date: 20100517
  Transmission Date: 20101027
  Serious: Yes (Hospitalization)
  Sender: FDA-Public Use
  Company Number: US-ELI_LILLY_AND_COMPANY-US201005004338

PATIENT
  Sex: Male

DRUGS (15)
  1. GEMCITABINE HYDROCHLORIDE [Suspect]
     Indication: PANCREATIC CARCINOMA
     Dosage: 1000 MG/M2, UNK
     Dates: start: 20100401, end: 20100506
  2. GEMCITABINE HYDROCHLORIDE [Suspect]
     Dates: start: 20100520
  3. PACLITAXEL [Suspect]
     Indication: PANCREATIC CARCINOMA
     Dosage: 125 MG/M2, UNK
     Dates: start: 20100401, end: 20100506
  4. PACLITAXEL [Suspect]
     Dates: start: 20100520
  5. MULTI-VITAMIN [Concomitant]
     Indication: VITAMIN SUPPLEMENTATION
     Dosage: 1 D/F, DAILY (1/D)
     Route: 048
     Dates: start: 20100331
  6. VITAMIN C [Concomitant]
     Indication: VITAMIN SUPPLEMENTATION
     Dosage: 1 D/F, DAILY (1/D)
     Route: 048
     Dates: start: 20100331
  7. BENADRYL [Concomitant]
     Dosage: 25 MG, AS NEEDED
     Route: 048
     Dates: start: 20100331
  8. CREON [Concomitant]
     Dosage: 12000 U, OTHER
     Route: 048
     Dates: start: 20100401
  9. PEPCID AC [Concomitant]
     Indication: NAUSEA
     Dosage: 10 MG, AS NEEDED
     Route: 048
     Dates: start: 20100402
  10. XANAX [Concomitant]
     Indication: ANXIETY
     Dosage: 0.25 MG, AS NEEDED
     Route: 048
     Dates: start: 20100404
  11. PROCHLORPERAZINE [Concomitant]
     Dosage: 1 D/F, AS NEEDED
     Route: 048
     Dates: start: 20100421
  12. ADVIL LIQUI-GELS [Concomitant]
     Dosage: 400 MG, AS NEEDED
     Route: 048
     Dates: start: 20100421
  13. LASIX [Concomitant]
     Dosage: 20 MG, UNK
     Route: 048
     Dates: start: 20100423
  14. KEFLEX /00145501/ [Concomitant]
     Dosage: 1500 MG, UNK
     Route: 048
     Dates: start: 20100503
  15. POTASSIUM CHLORIDE [Concomitant]
     Dosage: 10 MEQ, UNK
     Route: 048
     Dates: start: 20100506

REACTIONS (1)
  - CELLULITIS [None]
